FAERS Safety Report 6832089-4 (Version None)
Quarter: 2010Q3

REPORT INFORMATION
  Report Type: 
  Country: None (occurrence: None)
  Receive Date: 20100712
  Receipt Date: 20100628
  Transmission Date: 20110219
  Serious: Yes (Life-Threatening, Hospitalization)
  Sender: FDA-Public Use
  Company Number: GB-AMGEN-US220423

PATIENT
  Sex: Female
  Weight: 56 kg

DRUGS (5)
  1. ETANERCEPT [Suspect]
     Indication: RHEUMATOID ARTHRITIS
     Route: 058
     Dates: start: 20051219, end: 20060715
  2. ETANERCEPT [Suspect]
     Route: 058
     Dates: start: 20061201, end: 20070310
  3. CO-DYDRAMOL [Concomitant]
     Dosage: UNKNOWN
  4. DICLOFENAC SODIUM [Concomitant]
     Dosage: UNKNOWN
  5. SULFASALAZINE [Concomitant]
     Dosage: UNKNOWN

REACTIONS (2)
  - PERICARDIAL EFFUSION [None]
  - PYREXIA [None]
